FAERS Safety Report 8477751 (Version 4)
Quarter: 2012Q4

REPORT INFORMATION
  Report Type: 
  Country: ES (occurrence: ES)
  Receive Date: 20120327
  Receipt Date: 20121123
  Transmission Date: 20130627
  Serious: Yes (Hospitalization)
  Sender: FDA-Public Use
  Company Number: PHHO2012ES004483

PATIENT
  Age: 77 Year
  Sex: Male
  Weight: 86 kg

DRUGS (2)
  1. SANDOSTATIN LAR [Suspect]
     Indication: NEUROENDOCRINE TUMOUR
     Dosage: 80 ug, UNK
     Route: 030
     Dates: start: 20111228, end: 20120221
  2. AFINITOR [Suspect]
     Indication: NEUROENDOCRINE TUMOUR
     Dosage: 10 mg, UNK
     Route: 048
     Dates: start: 20111228, end: 20120315

REACTIONS (3)
  - Septic shock [Recovered/Resolved]
  - Cholangitis [Recovered/Resolved]
  - Escherichia bacteraemia [Recovered/Resolved]
